FAERS Safety Report 7327421-1 (Version None)
Quarter: 2011Q1

REPORT INFORMATION
  Report Type: 
  Country: None (occurrence: None)
  Receive Date: 20110303
  Receipt Date: 20110222
  Transmission Date: 20110831
  Serious: Yes (Other)
  Sender: FDA-Public Use
  Company Number: DE-AMGEN-DEUSP2011011121

PATIENT
  Sex: Female

DRUGS (4)
  1. FOLIC ACID [Concomitant]
     Dosage: 5 MG, UNK
  2. CORTISONE [Suspect]
     Indication: PRODUCT USED FOR UNKNOWN INDICATION
     Dosage: UNK
  3. ENBREL [Suspect]
     Indication: PRODUCT USED FOR UNKNOWN INDICATION
     Dosage: UNK
  4. METHOTREXATE SODIUM [Suspect]
     Indication: PRODUCT USED FOR UNKNOWN INDICATION
     Dosage: 10 MG, UNK

REACTIONS (4)
  - PYELONEPHRITIS [None]
  - INJECTION SITE ERYTHEMA [None]
  - STOMATITIS [None]
  - INJECTION SITE PAIN [None]
